FAERS Safety Report 17375544 (Version 1)
Quarter: 2020Q1

REPORT INFORMATION
  Report Type: Spontaneous
  Country: US (occurrence: US)
  Receive Date: 20200206
  Receipt Date: 20200206
  Transmission Date: 20200409
  Serious: No
  Sender: FDA-Public Use
  Company Number: US-GLAXOSMITHKLINE-US2020018392

PATIENT

DRUGS (4)
  1. EXCEDRIN EXTRA STRENGTH [Concomitant]
     Active Substance: ACETAMINOPHEN\ASPIRIN\CAFFEINE
     Indication: MYALGIA
  2. EXCEDRIN MIGRAINE [Suspect]
     Active Substance: ACETAMINOPHEN\ASPIRIN\CAFFEINE
     Indication: ARTHRALGIA
     Dosage: UNK
  3. EXCEDRIN MIGRAINE [Suspect]
     Active Substance: ACETAMINOPHEN\ASPIRIN\CAFFEINE
     Indication: MYALGIA
  4. EXCEDRIN EXTRA STRENGTH [Concomitant]
     Active Substance: ACETAMINOPHEN\ASPIRIN\CAFFEINE
     Indication: ARTHRALGIA
     Dosage: UNK

REACTIONS (2)
  - Drug ineffective for unapproved indication [Unknown]
  - Product use in unapproved indication [Unknown]
